FAERS Safety Report 5884863-9 (Version None)
Quarter: 2008Q3

REPORT INFORMATION
  Report Type: 
  Country: None (occurrence: None)
  Receive Date: 20080912
  Receipt Date: 20080905
  Transmission Date: 20090109
  Serious: Yes (Hospitalization, Other)
  Sender: FDA-Public Use
  Company Number: WAES 0809USA00981

PATIENT
  Age: 61 Year
  Sex: Male
  Weight: 94.8018 kg

DRUGS (10)
  1. CAP  VORINOSTAT     100 MG [Suspect]
     Indication: MULTIPLE MYELOMA
     Dosage: 300 MG DAILY PO
     Route: 048
     Dates: start: 20080421
  2. REVLIMID [Suspect]
     Indication: MULTIPLE MYELOMA
     Dosage: 5 MG DAILY PO
     Route: 048
     Dates: start: 20080421
  3. TAB DEXAMETHASONE                 4 MG [Suspect]
     Indication: MULTIPLE MYELOMA
     Dosage: 4 MG WKY PO
     Route: 048
     Dates: start: 20080421
  4. ASPIRIN [Suspect]
     Indication: ANTICOAGULANT THERAPY
     Dosage: 81 MG DAILY PO
     Route: 048
     Dates: start: 20080421
  5. BENICAR [Concomitant]
  6. COREG [Concomitant]
  7. LOVENOX [Concomitant]
  8. SULAR [Concomitant]
  9. ZOCOR [Concomitant]
  10. ALLOPURINOL [Concomitant]

REACTIONS (5)
  - HAEMATOCRIT DECREASED [None]
  - HAEMOGLOBIN DECREASED [None]
  - NEUTROPHIL COUNT DECREASED [None]
  - PNEUMONIA [None]
  - PYREXIA [None]
